FAERS Safety Report 11594622 (Version 2)
Quarter: 2015Q4

REPORT INFORMATION
  Report Type: Spontaneous
  Country: US (occurrence: US)
  Receive Date: 20151005
  Receipt Date: 20151119
  Transmission Date: 20160304
  Serious: Yes (Death, Hospitalization)
  Sender: FDA-Public Use
  Company Number: US-UNITED THERAPEUTICS-UNT-2015-011731

PATIENT
  Sex: Male

DRUGS (3)
  1. ORENITRAM [Suspect]
     Active Substance: TREPROSTINIL
     Indication: PULMONARY ARTERIAL HYPERTENSION
     Dosage: 2.625 MG, TID
     Route: 048
     Dates: start: 20150710
  2. ORENITRAM [Suspect]
     Active Substance: TREPROSTINIL
     Dosage: 1.75 MG, TID
     Route: 048
     Dates: start: 20150831, end: 20151027
  3. ORENITRAM [Suspect]
     Active Substance: TREPROSTINIL
     Dosage: 1.875 MG, TID
     Route: 048
     Dates: end: 20150921

REACTIONS (4)
  - Death [Fatal]
  - Hypoaesthesia [Unknown]
  - Condition aggravated [Unknown]
  - Mass [Unknown]

NARRATIVE: CASE EVENT DATE: 20150917
